FAERS Safety Report 7444639-8 (Version None)
Quarter: 2011Q2

REPORT INFORMATION
  Report Type: 
  Country: None (occurrence: None)
  Receive Date: 20110429
  Receipt Date: 20110426
  Transmission Date: 20111010
  Serious: Yes (Death, Other)
  Sender: FDA-Public Use
  Company Number: US-PFIZER INC-2010161774

PATIENT
  Sex: Male

DRUGS (2)
  1. AUGMENTIN [Concomitant]
     Indication: ANTIBIOTIC THERAPY
     Dosage: UNK
     Dates: start: 20050101, end: 20090101
  2. CHANTIX [Suspect]
     Indication: SMOKING CESSATION THERAPY
     Dosage: 1 MG, 1X/DAY
     Dates: start: 20071214, end: 20081216

REACTIONS (7)
  - ANXIETY [None]
  - ABNORMAL BEHAVIOUR [None]
  - NIGHTMARE [None]
  - COMPLETED SUICIDE [None]
  - THINKING ABNORMAL [None]
  - SLEEP DISORDER [None]
  - DEPRESSION [None]
